FAERS Safety Report 4695167-4 (Version None)
Quarter: 2005Q2

REPORT INFORMATION
  Report Type: 
  Country: None (occurrence: None)
  Receive Date: 20050617
  Receipt Date: 20050609
  Transmission Date: 20051028
  Serious: Yes (Other)
  Sender: FDA-Public Use
  Company Number: ZAWYE741414JUN05

PATIENT
  Age: 37 Year
  Sex: Female

DRUGS (1)
  1. EFFEXOR XR [Suspect]
     Indication: DEPRESSION
     Dosage: TITRATED FROM 75 - 150 MG DAILY, ORAL
     Route: 048
     Dates: start: 20041105, end: 20041116

REACTIONS (2)
  - DRUG ERUPTION [None]
  - RASH GENERALISED [None]
